FAERS Safety Report 8790826 (Version 1)
Quarter: 2012Q4

REPORT INFORMATION
  Report Type: Spontaneous
  Country: US (occurrence: None)
  Receive Date: 20120912
  Receipt Date: 20120912
  Transmission Date: 20130627
  Serious: No
  Sender: FDA-Public Use
  Company Number: None

PATIENT
  Sex: Female

DRUGS (2)
  1. INLYTA [Suspect]
     Indication: RENAL CELL CANCER
     Dosage: 3 mg bid po most recent dose
     Route: 048
     Dates: start: 20120731, end: 201209
  2. INLYTA [Suspect]
     Indication: RENAL CELL CANCER
     Dosage: 5 MG tab BID PO Previous dose
     Route: 048

REACTIONS (2)
  - Renal cell carcinoma [None]
  - Malignant neoplasm progression [None]
